FAERS Safety Report 13644567 (Version 1)
Quarter: 2017Q2

REPORT INFORMATION
  Report Type: Spontaneous
  Country: US (occurrence: US)
  Receive Date: 20170612
  Receipt Date: 20170612
  Transmission Date: 20170830
  Serious: Yes (Hospitalization)
  Sender: FDA-Public Use
  Company Number: US-ROCHE-1540093

PATIENT
  Sex: Male

DRUGS (1)
  1. XELODA [Suspect]
     Active Substance: CAPECITABINE
     Indication: PRODUCT USED FOR UNKNOWN INDICATION
     Dosage: 2 AM, 1 PM
     Route: 048
     Dates: start: 20141202

REACTIONS (5)
  - Dehydration [Unknown]
  - Paraesthesia [Unknown]
  - Asthenia [Unknown]
  - Peripheral coldness [Unknown]
  - Constipation [Unknown]
